FAERS Safety Report 10269133 (Version 1)
Quarter: 2014Q2

REPORT INFORMATION
  Report Type: Spontaneous
  Country: US (occurrence: US)
  Receive Date: 20140630
  Receipt Date: 20140630
  Transmission Date: 20141212
  Serious: No
  Sender: FDA-Public Use
  Company Number: US-GILEAD-2014-0107176

PATIENT
  Age: 77 Year
  Sex: Female

DRUGS (14)
  1. LETAIRIS [Suspect]
     Indication: PULMONARY HYPERTENSION
     Dosage: 10 MG, QD
     Route: 065
     Dates: start: 20140213
  2. ADCIRCA [Concomitant]
  3. GARLIC                             /01570501/ [Concomitant]
  4. OMEGA 3                            /01334101/ [Concomitant]
  5. VITAMIN B-12 [Concomitant]
  6. SPIRONOLACTONE [Concomitant]
  7. POTASSIUM [Concomitant]
  8. METFORMIN [Concomitant]
  9. FUROSEMIDE [Concomitant]
  10. DIGOXIN [Concomitant]
  11. CARVEDILOL [Concomitant]
  12. ATORVASTATIN [Concomitant]
  13. ASPIRIN [Concomitant]
  14. ALPRAZOLAM [Concomitant]

REACTIONS (2)
  - Paraesthesia [Not Recovered/Not Resolved]
  - Hypoaesthesia [Not Recovered/Not Resolved]
